FAERS Safety Report 5578932-0 (Version None)
Quarter: 2008Q1

REPORT INFORMATION
  Report Type: 
  Country: None (occurrence: None)
  Receive Date: 20080102
  Receipt Date: 20071218
  Transmission Date: 20080703
  Serious: Yes (Hospitalization)
  Sender: FDA-Public Use
  Company Number: GB-AMGEN-UK218731

PATIENT
  Sex: Male

DRUGS (13)
  1. PANITUMUMAB [Suspect]
     Indication: COLORECTAL CANCER
     Route: 042
     Dates: start: 20060925
  2. LEVOFLOXACIN [Concomitant]
     Route: 048
     Dates: start: 20070129, end: 20070204
  3. FILGRASTIM [Concomitant]
     Route: 058
     Dates: start: 20061211
  4. ONDANSETRON [Concomitant]
     Dates: start: 20061106
  5. DEXAMETHASONE TAB [Concomitant]
     Route: 048
     Dates: start: 20070212
  6. ATROPINE [Concomitant]
     Route: 058
     Dates: start: 20070212
  7. LOPERAMIDE HCL [Concomitant]
     Route: 048
     Dates: start: 20060925
  8. MINOCYCLINE HCL [Concomitant]
     Route: 048
     Dates: start: 20061009
  9. CHLORHEXIDINE GLUCONATE [Concomitant]
     Route: 048
  10. DIPROBASE [Concomitant]
  11. CALCICHEW [Concomitant]
     Route: 048
     Dates: start: 20061106
  12. E45 [Concomitant]
     Dates: start: 20061106
  13. FLUCLOXACILLIN [Concomitant]
     Dates: start: 20061120, end: 20061127

REACTIONS (2)
  - PNEUMONIA [None]
  - PULMONARY EMBOLISM [None]
